FAERS Safety Report 23748962 (Version 1)
Quarter: 2024Q2

REPORT INFORMATION
  Report Type: Spontaneous
  Country: US (occurrence: None)
  Receive Date: 20240416
  Receipt Date: 20240416
  Transmission Date: 20240716
  Serious: Yes (Disabling, Other)
  Sender: FDA-Public Use
  Company Number: None

PATIENT
  Age: 22 Year
  Sex: Male
  Weight: 103.5 kg

DRUGS (12)
  1. METFORMIN [Suspect]
     Active Substance: METFORMIN HYDROCHLORIDE
     Indication: Hyperinsulinaemia
     Dosage: 1 TABLET DAILY ORAL
     Route: 048
     Dates: start: 20240315, end: 20240412
  2. LOPERAMIDE [Concomitant]
     Active Substance: LOPERAMIDE
  3. ROSUVASTATIN [Concomitant]
     Active Substance: ROSUVASTATIN
  4. ADERALL XR [Concomitant]
  5. METOPROLOL [Concomitant]
     Active Substance: METOPROLOL
  6. DULOXETINE [Concomitant]
     Active Substance: DULOXETINE
  7. OXYBUTYNIN [Concomitant]
     Active Substance: OXYBUTYNIN\OXYBUTYNIN CHLORIDE
  8. KEPPRA [Concomitant]
     Active Substance: LEVETIRACETAM
  9. HYDROXYZINE [Concomitant]
     Active Substance: HYDROXYZINE HYDROCHLORIDE
  10. VITAMIN D [Concomitant]
     Active Substance: VITAMIN D NOS
  11. VITAMIN E [Concomitant]
     Active Substance: .ALPHA.-TOCOPHEROL
  12. MAGNESIUM [Concomitant]
     Active Substance: MAGNESIUM

REACTIONS (4)
  - Mood swings [None]
  - Depression [None]
  - Hot flush [None]
  - Feeling cold [None]

NARRATIVE: CASE EVENT DATE: 20240402
